FAERS Safety Report 22619552 (Version 2)
Quarter: 2023Q4

REPORT INFORMATION
  Report Type: Spontaneous
  Country: CA (occurrence: CA)
  Receive Date: 20230620
  Receipt Date: 20231030
  Transmission Date: 20240110
  Serious: Yes (Death, Hospitalization, Other)
  Sender: FDA-Public Use
  Company Number: CA-TAKEDA-2023TUS059299

PATIENT
  Age: 77 Year
  Sex: Male
  Weight: 68 kg

DRUGS (3)
  1. HUMAN IMMUNOGLOBULIN G [Suspect]
     Active Substance: HUMAN IMMUNOGLOBULIN G
     Indication: Immunodeficiency
     Dosage: 40 GRAM
     Route: 065
     Dates: start: 2022, end: 2022
  2. IBUPROFEN [Concomitant]
     Active Substance: IBUPROFEN
     Dosage: 400 MILLIGRAM
     Route: 065
  3. TYLENOL [Concomitant]
     Active Substance: ACETAMINOPHEN
     Dosage: 1 GRAM, QD
     Route: 065

REACTIONS (11)
  - Lung infiltration [Fatal]
  - Tachypnoea [Fatal]
  - Transfusion-related circulatory overload [Fatal]
  - COVID-19 [Fatal]
  - Pneumonia [Fatal]
  - Heart rate increased [Fatal]
  - Hypoxia [Fatal]
  - Anaphylactic shock [Fatal]
  - Body temperature increased [Fatal]
  - Chills [Fatal]
  - Transfusion-related acute lung injury [Fatal]

NARRATIVE: CASE EVENT DATE: 20220101
